FAERS Safety Report 11122734 (Version 1)
Quarter: 2015Q2

REPORT INFORMATION
  Report Type: Spontaneous
  Country: BR (occurrence: BR)
  Receive Date: 20150519
  Receipt Date: 20150519
  Transmission Date: 20150821
  Serious: Yes (Other)
  Sender: FDA-Public Use
  Company Number: BR-ASTRAZENECA-2015SE44277

PATIENT
  Age: 805 Month
  Sex: Female
  Weight: 57 kg

DRUGS (4)
  1. VASLIP [Concomitant]
     Indication: BLOOD CHOLESTEROL INCREASED
     Route: 048
  2. LOSEC [Suspect]
     Active Substance: OMEPRAZOLE
     Indication: GASTRITIS
     Dosage: 20 MG, TWO TIMES A DAY, OMEPRAZOLE (MEDLEY MANUFACTURER)
     Route: 048
     Dates: start: 201410
  3. LOSEC [Suspect]
     Active Substance: OMEPRAZOLE
     Indication: GASTRITIS
     Route: 048
  4. ATENOL [Suspect]
     Active Substance: ATENOLOL
     Indication: HYPERTENSION
     Dosage: DAILY
     Route: 048
     Dates: start: 2005

REACTIONS (5)
  - Pneumonia [Recovered/Resolved]
  - Gastritis [Recovered/Resolved]
  - Gastrooesophageal reflux disease [Not Recovered/Not Resolved]
  - Drug ineffective [Not Recovered/Not Resolved]
  - Abdominal pain upper [Not Recovered/Not Resolved]

NARRATIVE: CASE EVENT DATE: 201410
